FAERS Safety Report 5308731-6 (Version None)
Quarter: 2007Q2

REPORT INFORMATION
  Report Type: 
  Country: None (occurrence: None)
  Receive Date: 20070426
  Receipt Date: 20070419
  Transmission Date: 20071010
  Serious: Yes (Disabling)
  Sender: FDA-Public Use
  Company Number: 2007AP02320

PATIENT
  Age: 63 Year
  Sex: Female

DRUGS (3)
  1. IRESSA [Suspect]
     Indication: LUNG NEOPLASM MALIGNANT
     Route: 048
     Dates: start: 20061101, end: 20070201
  2. IRESSA [Suspect]
     Route: 048
     Dates: start: 20070201, end: 20070301
  3. IRESSA [Suspect]
     Route: 048
     Dates: start: 20070419

REACTIONS (1)
  - HEPATIC FUNCTION ABNORMAL [None]
